FAERS Safety Report 17510544 (Version 2)
Quarter: 2020Q1

REPORT INFORMATION
  Report Type: Spontaneous
  Country: JP (occurrence: JP)
  Receive Date: 20200306
  Receipt Date: 20200309
  Transmission Date: 20200409
  Serious: Yes (Other)
  Sender: FDA-Public Use
  Company Number: NVSJ2020JP002858

PATIENT
  Age: 74 Year
  Sex: Male

DRUGS (2)
  1. RANMARK [Suspect]
     Active Substance: DENOSUMAB
     Indication: METASTASES TO BONE
     Dosage: UNK
     Route: 065
     Dates: start: 201612
  2. ZOMETA [Suspect]
     Active Substance: ZOLEDRONIC ACID
     Indication: METASTASES TO BONE
     Dosage: UNK
     Route: 042
     Dates: start: 201510

REACTIONS (6)
  - Exposed bone in jaw [Recovering/Resolving]
  - Hyperaesthesia [Not Recovered/Not Resolved]
  - Impaired healing [Unknown]
  - Tooth extraction [Unknown]
  - Osteonecrosis of jaw [Recovering/Resolving]
  - Pain [Recovering/Resolving]

NARRATIVE: CASE EVENT DATE: 201805
